FAERS Safety Report 8283781-9 (Version None)
Quarter: 2012Q2

REPORT INFORMATION
  Report Type: 
  Country: None (occurrence: None)
  Receive Date: 20120413
  Receipt Date: 20111021
  Transmission Date: 20120825
  Serious: No
  Sender: FDA-Public Use
  Company Number: US-ASTRAZENECA-2011SE46734

PATIENT
  Age: 47 Year
  Sex: Female

DRUGS (2)
  1. PRILOSEC OTC [Suspect]
     Route: 048
  2. NEXIUM [Suspect]
     Route: 048

REACTIONS (10)
  - INFLUENZA [None]
  - DRUG INEFFECTIVE [None]
  - FATIGUE [None]
  - VOMITING [None]
  - GASTRIC DISORDER [None]
  - ILL-DEFINED DISORDER [None]
  - DRUG DOSE OMISSION [None]
  - STRESS [None]
  - PNEUMONIA [None]
  - INCORRECT DOSE ADMINISTERED [None]
